FAERS Safety Report 5179344-4 (Version None)
Quarter: 2006Q4

REPORT INFORMATION
  Report Type: 
  Country: None (occurrence: None)
  Receive Date: 20061219
  Receipt Date: 20061214
  Transmission Date: 20070319
  Serious: Yes (Other)
  Sender: FDA-Public Use
  Company Number: RU-GLAXOSMITHKLINE-B0450957A

PATIENT
  Age: 22 Year
  Sex: Female
  Weight: 58 kg

DRUGS (2)
  1. VALTREX [Suspect]
     Dosage: 500MG PER DAY
     Route: 048
     Dates: start: 20060715
  2. POLYOXYDONIUM [Concomitant]
     Dosage: 6MG PER DAY
     Route: 030
     Dates: start: 20060801, end: 20060820

REACTIONS (4)
  - ALOPECIA [None]
  - DRY SKIN [None]
  - RASH [None]
  - SKIN EXFOLIATION [None]
